FAERS Safety Report 8763451 (Version 3)
Quarter: 2012Q4

REPORT INFORMATION
  Report Type: 
  Country: JP (occurrence: JP)
  Receive Date: 20120831
  Receipt Date: 20121002
  Transmission Date: 20130627
  Serious: Yes (Hospitalization)
  Sender: FDA-Public Use
  Company Number: JP-009507513-1208JPN011627

PATIENT
  Age: 63 Year
  Sex: Male

DRUGS (6)
  1. JANUVIA TABLETS 50MG [Suspect]
     Indication: DIABETES MELLITUS
     Dosage: 50 mg, qd
     Route: 048
     Dates: start: 20110905
  2. AMLODIPINE [Concomitant]
     Indication: HYPERTENSION
     Route: 048
  3. LOSARTAN POTASSIUM [Concomitant]
     Indication: HYPERTENSION
     Route: 048
  4. RABEPRAZOLE SODIUM [Concomitant]
     Route: 048
  5. GASMOTIN [Concomitant]
     Route: 048
  6. MAGMITT [Concomitant]
     Route: 048

REACTIONS (1)
  - Intestinal obstruction [Recovered/Resolved]
